FAERS Safety Report 4881834-6 (Version None)
Quarter: 2006Q1

REPORT INFORMATION
  Report Type: 
  Country: None (occurrence: None)
  Receive Date: 20060112
  Receipt Date: 20060112
  Transmission Date: 20060701
  Serious: Yes (Hospitalization)
  Sender: FDA-Public Use
  Company Number: None

PATIENT
  Age: 47 Year
  Sex: Female
  Weight: 82.2825 kg

DRUGS (2)
  1. VINORELBINE TARTRATE [Suspect]
     Indication: CERVIX CARCINOMA RECURRENT
     Dosage: 56.4 MG, DAY 1,8, IV
     Route: 042
     Dates: start: 20050919, end: 20060103
  2. CISPLATIN [Suspect]
     Indication: CERVIX CARCINOMA RECURRENT
     Dosage: 94 MG, DAY 1, IV
     Route: 042
     Dates: start: 20050919, end: 20060103

REACTIONS (3)
  - CATHETER RELATED COMPLICATION [None]
  - CATHETER SITE PAIN [None]
  - DEEP VEIN THROMBOSIS [None]
